FAERS Safety Report 13192596 (Version 1)
Quarter: 2017Q1

REPORT INFORMATION
  Report Type: Spontaneous
  Country: US (occurrence: US)
  Receive Date: 20170207
  Receipt Date: 20170207
  Transmission Date: 20170428
  Serious: Yes (Hospitalization, Other)
  Sender: FDA-Public Use
  Company Number: None

PATIENT
  Age: 5 Year
  Sex: Male
  Weight: 20.25 kg

DRUGS (2)
  1. CHEST CONGESTION CHILDRENS [Suspect]
     Active Substance: GUAIFENESIN
     Indication: RESPIRATORY TRACT CONGESTION
     Route: 048
     Dates: start: 20161204
  2. CHEST CONGESTION CHILDRENS [Suspect]
     Active Substance: GUAIFENESIN
     Indication: COUGH
     Route: 048
     Dates: start: 20161204

REACTIONS (7)
  - Muscular weakness [None]
  - Foaming at mouth [None]
  - Nausea [None]
  - Unresponsive to stimuli [None]
  - Heart rate increased [None]
  - Hypersensitivity [None]
  - Vomiting [None]

NARRATIVE: CASE EVENT DATE: 20161204
